FAERS Safety Report 4292005-9 (Version None)
Quarter: 2004Q1

REPORT INFORMATION
  Report Type: 
  Country: None (occurrence: None)
  Receive Date: 20040126
  Receipt Date: 20031020
  Transmission Date: 20041129
  Serious: No
  Sender: FDA-Public Use
  Company Number: USA030947916

PATIENT
  Age: 80 Year
  Sex: Female
  Weight: 41 kg

DRUGS (2)
  1. FORTEO [Suspect]
     Indication: OSTEOPOROSIS
     Dosage: 20 UG/DAY
     Dates: start: 20030804, end: 20030922
  2. ACIPHEX [Concomitant]

REACTIONS (7)
  - ANOREXIA [None]
  - DIZZINESS [None]
  - DYSGEUSIA [None]
  - HEART RATE INCREASED [None]
  - MUSCLE CRAMP [None]
  - NAUSEA [None]
  - WEIGHT DECREASED [None]
